FAERS Safety Report 8911509 (Version 1)
Quarter: 2012Q4

REPORT INFORMATION
  Report Type: Spontaneous
  Country: US (occurrence: None)
  Receive Date: 20121114
  Receipt Date: 20121114
  Transmission Date: 20130627
  Serious: No
  Sender: FDA-Public Use
  Company Number: None

PATIENT
  Age: 6 Year
  Sex: Female
  Weight: 15.88 kg

DRUGS (2)
  1. CLARITIN [Suspect]
     Indication: OTITIS MEDIA
  2. ZYRTEC [Suspect]

REACTIONS (2)
  - Otitis media [None]
  - Cough [None]
